FAERS Safety Report 5678232-4 (Version None)
Quarter: 2008Q1

REPORT INFORMATION
  Report Type: 
  Country: None (occurrence: None)
  Receive Date: 20080320
  Receipt Date: 20080302
  Transmission Date: 20080703
  Serious: Yes (Hospitalization)
  Sender: FDA-Public Use
  Company Number: ENTC2008-0063

PATIENT
  Age: 84 Year
  Sex: Male

DRUGS (1)
  1. STALEVO 100 [Suspect]
     Indication: PARKINSON'S DISEASE
     Dosage: 2 TABLETS (100/25/200MG) PER DAY ORAL
     Route: 048
     Dates: end: 20080216

REACTIONS (2)
  - GASTRITIS [None]
  - HEADACHE [None]
